FAERS Safety Report 20493321 (Version 1)
Quarter: 2022Q1

REPORT INFORMATION
  Report Type: Report from Study
  Country: DE (occurrence: DE)
  Receive Date: 20220220
  Receipt Date: 20220220
  Transmission Date: 20220423
  Serious: Yes (Other)
  Sender: FDA-Public Use
  Company Number: DE-JNJFOC-20211219211

PATIENT
  Age: 26 Year
  Sex: Male

DRUGS (3)
  1. TREMFYA [Suspect]
     Active Substance: GUSELKUMAB
     Indication: Psoriasis
     Dosage: 100MG/ 4 WEEKS. ON 1 DAY/WEEK
     Route: 065
     Dates: start: 20180221, end: 20190504
  2. TREMFYA [Suspect]
     Active Substance: GUSELKUMAB
  3. TREMFYA [Suspect]
     Active Substance: GUSELKUMAB

REACTIONS (5)
  - Furuncle [Not Recovered/Not Resolved]
  - Abscess limb [Not Recovered/Not Resolved]
  - Off label use [Unknown]
  - Product use issue [Unknown]
  - Abscess [Unknown]

NARRATIVE: CASE EVENT DATE: 20180221
